FAERS Safety Report 19484556 (Version 1)
Quarter: 2021Q3

REPORT INFORMATION
  Report Type: Spontaneous
  Country: JP (occurrence: JP)
  Receive Date: 20210702
  Receipt Date: 20210702
  Transmission Date: 20211014
  Serious: Yes (Other)
  Sender: FDA-Public Use
  Company Number: JP-NOVOPROD-824280

PATIENT
  Weight: 4 kg

DRUGS (4)
  1. TRESIBA [Suspect]
     Active Substance: INSULIN DEGLUDEC
     Indication: PANCREATOGENOUS DIABETES
     Dosage: 5 IU, QD
     Route: 064
  2. INSULIN ASPART [Suspect]
     Active Substance: INSULIN ASPART
     Indication: PANCREATOGENOUS DIABETES
     Dosage: 15 IU, QD (4?5?6IU)
     Route: 064
  3. TRESIBA [Suspect]
     Active Substance: INSULIN DEGLUDEC
     Dosage: 6 IU, QD
     Route: 064
  4. INSULIN ASPART [Suspect]
     Active Substance: INSULIN ASPART
     Dosage: 21 IU, QD (7?8?6IU)
     Route: 064

REACTIONS (3)
  - Foetal exposure during pregnancy [Recovered/Resolved]
  - Large for dates baby [Unknown]
  - Hypoglycaemia neonatal [Recovered/Resolved]
